FAERS Safety Report 22367640 (Version 1)
Quarter: 2023Q2

REPORT INFORMATION
  Report Type: Spontaneous
  Country: US (occurrence: US)
  Receive Date: 20230525
  Receipt Date: 20230525
  Transmission Date: 20230722
  Serious: No
  Sender: FDA-Public Use
  Company Number: US-JNJFOC-20230545607

PATIENT
  Sex: Male

DRUGS (2)
  1. RISPERDAL [Suspect]
     Active Substance: RISPERIDONE
     Indication: Anxiety
     Dosage: 1MG TO 2 MG DEPENDING
     Route: 065
  2. RISPERIDONE [Suspect]
     Active Substance: RISPERIDONE
     Indication: Anxiety
     Route: 065

REACTIONS (7)
  - Weight increased [Unknown]
  - Weight decreased [Unknown]
  - Adverse event [Unknown]
  - Abnormal behaviour [Unknown]
  - Off label use [Unknown]
  - Increased appetite [Unknown]
  - Feeling abnormal [Unknown]
